FAERS Safety Report 17679127 (Version 1)
Quarter: 2020Q2

REPORT INFORMATION
  Report Type: Spontaneous
  Country: US (occurrence: US)
  Receive Date: 20200417
  Receipt Date: 20200417
  Transmission Date: 20200714
  Serious: No
  Sender: FDA-Public Use
  Company Number: US-MYLANLABS-2020M1035848

PATIENT
  Sex: Female

DRUGS (1)
  1. LIDOCAINE PATCH [Suspect]
     Active Substance: LIDOCAINE
     Indication: NEURALGIA
     Dosage: UNK UNK, BID
     Route: 003
     Dates: start: 20190219

REACTIONS (2)
  - Product adhesion issue [Not Recovered/Not Resolved]
  - Expired product administered [Not Recovered/Not Resolved]
